FAERS Safety Report 25685325 (Version 2)
Quarter: 2025Q3

REPORT INFORMATION
  Report Type: Spontaneous
  Country: IN (occurrence: IN)
  Receive Date: 20250815
  Receipt Date: 20250823
  Transmission Date: 20251021
  Serious: Yes (Disabling, Other)
  Sender: MACLEODS
  Company Number: IN-MACLEODS PHARMA-MAC2025054644

PATIENT

DRUGS (1)
  1. SILDENAFIL [Suspect]
     Active Substance: SILDENAFIL
     Indication: Product used for unknown indication
     Route: 048

REACTIONS (6)
  - Maculopathy [Not Recovered/Not Resolved]
  - Retinal degeneration [Recovering/Resolving]
  - Visual field defect [Not Recovered/Not Resolved]
  - Intentional overdose [Recovered/Resolved]
  - Counterfeit product administered [Recovered/Resolved]
  - Prescription drug used without a prescription [Recovered/Resolved]
